FAERS Safety Report 9612085 (Version 2)
Quarter: 2013Q4

REPORT INFORMATION
  Report Type: Spontaneous
  Country: US (occurrence: US)
  Receive Date: 20131010
  Receipt Date: 20131028
  Transmission Date: 20140711
  Serious: Yes (Other)
  Sender: FDA-Public Use
  Company Number: US-PURDUE-USA-2013-0106948

PATIENT
  Sex: Male

DRUGS (4)
  1. OXYCONTIN (NDA 22-272) [Suspect]
     Indication: PRODUCT USED FOR UNKNOWN INDICATION
     Dosage: UNK
     Route: 048
  2. OXYCONTIN (NDA 22-272) [Suspect]
     Dosage: 80 MG, UNK
     Route: 048
  3. OXYCODONE HCL IMMEDIATE RELEASE (91-490) [Suspect]
     Indication: BREAKTHROUGH PAIN
     Dosage: 30 MG, UNK
     Route: 048
  4. PERCOCET /00867901/ [Suspect]
     Indication: PAIN
     Dosage: UNKNOWN, AS NEEDED

REACTIONS (1)
  - Surgery [Unknown]
